FAERS Safety Report 20660831 (Version 1)
Quarter: 2022Q1

REPORT INFORMATION
  Report Type: Spontaneous
  Country: DE (occurrence: DE)
  Receive Date: 20220331
  Receipt Date: 20220331
  Transmission Date: 20220423
  Serious: Yes (Other)
  Sender: FDA-Public Use
  Company Number: DE-TEVA-2022-DE-2021102

PATIENT
  Age: 36 Year
  Sex: Male

DRUGS (2)
  1. FINASTERIDE [Suspect]
     Active Substance: FINASTERIDE
     Route: 065
  2. FINASTERIDE [Suspect]
     Active Substance: FINASTERIDE
     Route: 065
     Dates: start: 2007, end: 2015

REACTIONS (12)
  - Penile size reduced [Unknown]
  - Erectile dysfunction [Unknown]
  - Mitochondrial toxicity [Unknown]
  - Adverse event [Unknown]
  - Adverse drug reaction [Unknown]
  - Depression [Unknown]
  - Fatigue [Unknown]
  - Muscle atrophy [Unknown]
  - Balanoposthitis [Unknown]
  - Prostatitis [Unknown]
  - Pain [Unknown]
  - Insomnia [Unknown]
